FAERS Safety Report 4378106-5 (Version None)
Quarter: 2004Q2

REPORT INFORMATION
  Report Type: 
  Country: None (occurrence: None)
  Receive Date: 20040614
  Receipt Date: 20040604
  Transmission Date: 20050107
  Serious: Yes (Life-Threatening)
  Sender: FDA-Public Use
  Company Number: 2004UW11678

PATIENT
  Age: 69 Year
  Sex: Female

DRUGS (12)
  1. CRESTOR [Suspect]
     Indication: BLOOD CHOLESTEROL INCREASED
     Dosage: 10 MG QD PO
     Route: 048
     Dates: start: 20040416
  2. CARDIZEM CD [Concomitant]
  3. NEXIUM [Concomitant]
  4. AERIUS [Concomitant]
  5. ALTACE [Concomitant]
  6. CALCIUM AND VITAMIN D [Concomitant]
  7. ATIVAN [Concomitant]
  8. PLAVIX [Concomitant]
  9. PLAVIX [Concomitant]
  10. NITROGLYCERIN [Concomitant]
  11. VENTOLIN [Concomitant]
  12. FLOVENT [Concomitant]

REACTIONS (4)
  - APNOEA [None]
  - BRONCHOSPASM [None]
  - CONDITION AGGRAVATED [None]
  - DERMATITIS ALLERGIC [None]
